FAERS Safety Report 8204897-9 (Version None)
Quarter: 2012Q1

REPORT INFORMATION
  Report Type: 
  Country: None (occurrence: None)
  Receive Date: 20120313
  Receipt Date: 20120227
  Transmission Date: 20120608
  Serious: No
  Sender: FDA-Public Use
  Company Number: US-ENDO PHARMACEUTICALS INC.-PERC20110083

PATIENT
  Sex: Male
  Weight: 72.64 kg

DRUGS (1)
  1. PERCOCET [Suspect]
     Indication: PAIN
     Dosage: 30MG/1950MG
     Route: 048
     Dates: start: 20050101

REACTIONS (2)
  - COUNTERFEIT DRUG ADMINISTERED [None]
  - DRUG INEFFECTIVE [None]
